FAERS Safety Report 5680378-1 (Version None)
Quarter: 2008Q1

REPORT INFORMATION
  Report Type: 
  Country: None (occurrence: None)
  Receive Date: 20080326
  Receipt Date: 20080324
  Transmission Date: 20080703
  Serious: Yes (Other)
  Sender: FDA-Public Use
  Company Number: A0717083A

PATIENT
  Age: 59 Year
  Sex: Female
  Weight: 79 kg

DRUGS (6)
  1. ALLI [Suspect]
     Indication: WEIGHT CONTROL
     Dates: start: 20080208, end: 20080306
  2. NAPROXEN [Concomitant]
  3. ASPIRIN [Concomitant]
  4. CALCIUM [Concomitant]
  5. MULTI-VITAMIN [Concomitant]
  6. PRILOSEC [Concomitant]

REACTIONS (2)
  - BREAST CANCER [None]
  - BREAST MASS [None]
